FAERS Safety Report 8441651 (Version 4)
Quarter: 2013Q3

REPORT INFORMATION
  Report Type: Report from Study
  Country: US (occurrence: US)
  Receive Date: 20120305
  Receipt Date: 20130808
  Transmission Date: 20140515
  Serious: Yes (Other)
  Sender: FDA-Public Use
  Company Number: PHEH2012US004836

PATIENT
  Age: 44 Year
  Sex: Female

DRUGS (9)
  1. GILENYA [Suspect]
     Indication: MULTIPLE SCLEROSIS
     Dosage: 0.5 MG, DAILY
     Route: 048
     Dates: start: 20110303
  2. TOVIAZ [Concomitant]
     Dosage: 8 MG, UNK
  3. CYMBALTA [Concomitant]
     Dosage: 30 MG, QD
     Route: 048
  4. MECLIZINE [Concomitant]
     Dosage: 12.5 MG, UNK
  5. LYRICA [Concomitant]
     Dosage: 200 MG, TID
  6. ENABLEX [Concomitant]
     Dosage: 7.5 MG, UNK
  7. DOXAZOSIN MESYLATE [Concomitant]
     Dosage: 4 MG, UNK
  8. BACLOFEN [Concomitant]
     Dosage: 10 MG, UNK
  9. NEXUM [Concomitant]
     Dosage: 40 MG, UNK

REACTIONS (2)
  - Central nervous system lesion [Recovering/Resolving]
  - Laboratory test abnormal [Unknown]
